FAERS Safety Report 5150107-9 (Version None)
Quarter: 2006Q4

REPORT INFORMATION
  Report Type: 
  Country: None (occurrence: None)
  Receive Date: 20061114
  Receipt Date: 20061103
  Transmission Date: 20070319
  Serious: Yes (Other)
  Sender: FDA-Public Use
  Company Number: GB-JNJFOC-20061100964

PATIENT

DRUGS (1)
  1. REMICADE [Suspect]
     Indication: DRUG USE FOR UNKNOWN INDICATION
     Dosage: DURATION OF MORE THAN 10 YEARS
     Route: 042

REACTIONS (2)
  - ANTINUCLEAR ANTIBODY INCREASED [None]
  - SYSTEMIC LUPUS ERYTHEMATOSUS [None]
